FAERS Safety Report 20915928 (Version 1)
Quarter: 2022Q2

REPORT INFORMATION
  Report Type: Spontaneous
  Country: US (occurrence: US)
  Receive Date: 20220604
  Receipt Date: 20220604
  Transmission Date: 20220721
  Serious: No
  Sender: FDA-Public Use
  Company Number: US-SA-SAC20220531000526

PATIENT
  Age: 69 Year
  Sex: Female

DRUGS (17)
  1. DUPIXENT [Suspect]
     Active Substance: DUPILUMAB
     Indication: Asthma
     Route: 058
     Dates: start: 20200519
  2. BOTOX [Concomitant]
     Active Substance: ONABOTULINUMTOXINA
  3. CARDIZEM [Concomitant]
     Active Substance: DILTIAZEM HYDROCHLORIDE
  4. JANUVIA [Concomitant]
     Active Substance: SITAGLIPTIN PHOSPHATE
  5. GABAPENTIN [Concomitant]
     Active Substance: GABAPENTIN
  6. LIPITOR [Concomitant]
     Active Substance: ATORVASTATIN CALCIUM
  7. LASIX [Concomitant]
     Active Substance: FUROSEMIDE
  8. ELIQUIS [Concomitant]
     Active Substance: APIXABAN
  9. REMICADE [Concomitant]
     Active Substance: INFLIXIMAB
  10. SYMBICORT [Concomitant]
     Active Substance: BUDESONIDE\FORMOTEROL FUMARATE DIHYDRATE
  11. SPIRIVA [TIOTROPIUM BROMIDE] [Concomitant]
  12. LEXAPRO [Concomitant]
     Active Substance: ESCITALOPRAM OXALATE
  13. SINGULAIR [Concomitant]
     Active Substance: MONTELUKAST SODIUM
  14. PLAQUENIL [Concomitant]
     Active Substance: HYDROXYCHLOROQUINE SULFATE
  15. PREDNISONE [Concomitant]
     Active Substance: PREDNISONE
  16. METHOTREXATE [Concomitant]
     Active Substance: METHOTREXATE
  17. VITAMINS NOS [Concomitant]
     Active Substance: VITAMINS

REACTIONS (3)
  - Cough [Not Recovered/Not Resolved]
  - Food allergy [Not Recovered/Not Resolved]
  - Weight decreased [Not Recovered/Not Resolved]

NARRATIVE: CASE EVENT DATE: 20220514
